FAERS Safety Report 7339872-X (Version None)
Quarter: 2011Q1

REPORT INFORMATION
  Report Type: 
  Country: None (occurrence: None)
  Receive Date: 20110304
  Receipt Date: 20110304
  Transmission Date: 20110831
  Serious: Yes (Hospitalization)
  Sender: FDA-Public Use
  Company Number: None

PATIENT
  Age: 60 Year
  Sex: Male
  Weight: 90.9 kg

DRUGS (1)
  1. BUPROPION [Suspect]
     Indication: ANXIETY
     Dosage: 75 MG AM PO
     Route: 048
     Dates: start: 20110301, end: 20110302

REACTIONS (2)
  - HYPOAESTHESIA FACIAL [None]
  - DYSTONIA [None]
